FAERS Safety Report 20649523 (Version 2)
Quarter: 2022Q2

REPORT INFORMATION
  Report Type: Report from Study
  Country: US (occurrence: US)
  Receive Date: 20220329
  Receipt Date: 20220504
  Transmission Date: 20220721
  Serious: Yes (Hospitalization)
  Sender: FDA-Public Use
  Company Number: US-ABBVIE-22P-163-4272188-00

PATIENT
  Age: 59 Year
  Sex: Female

DRUGS (8)
  1. VENETOCLAX [Suspect]
     Active Substance: VENETOCLAX
     Indication: Acute myeloid leukaemia
     Route: 048
     Dates: start: 20220103, end: 20220116
  2. VENETOCLAX [Suspect]
     Active Substance: VENETOCLAX
     Route: 048
     Dates: start: 20220217, end: 20220302
  3. VENETOCLAX [Suspect]
     Active Substance: VENETOCLAX
     Route: 048
     Dates: start: 20220415
  4. AZACITIDINE [Concomitant]
     Active Substance: AZACITIDINE
     Indication: Acute myeloid leukaemia
     Route: 065
     Dates: start: 20220103, end: 20220107
  5. AZACITIDINE [Concomitant]
     Active Substance: AZACITIDINE
     Route: 065
     Dates: start: 20220110, end: 20220111
  6. AZACITIDINE [Concomitant]
     Active Substance: AZACITIDINE
     Route: 065
     Dates: start: 20220217, end: 20220223
  7. AZACITIDINE [Concomitant]
     Active Substance: AZACITIDINE
     Route: 065
     Dates: start: 20220415
  8. MAGROLIMAB [Concomitant]
     Active Substance: MAGROLIMAB
     Indication: Acute myeloid leukaemia
     Route: 065
     Dates: start: 20220103

REACTIONS (2)
  - Soft tissue infection [Recovered/Resolved]
  - Febrile neutropenia [Not Recovered/Not Resolved]

NARRATIVE: CASE EVENT DATE: 20220128
